FAERS Safety Report 6412441-1 (Version None)
Quarter: 2009Q4

REPORT INFORMATION
  Report Type: 
  Country: None (occurrence: None)
  Receive Date: 20091023
  Receipt Date: 20091016
  Transmission Date: 20100525
  Serious: Yes (Hospitalization)
  Sender: FDA-Public Use
  Company Number: US-MERCK-0811USA01209

PATIENT
  Age: 71 Year
  Sex: Female

DRUGS (2)
  1. FOSAMAX [Suspect]
     Indication: OSTEOPOROSIS
     Route: 048
     Dates: start: 20011101, end: 20061223
  2. ACTONEL [Concomitant]
     Route: 065
     Dates: start: 20010101

REACTIONS (23)
  - ABDOMINAL PAIN [None]
  - ARTHRITIS [None]
  - ARTHROPATHY [None]
  - BACK PAIN [None]
  - CELLULITIS [None]
  - COLITIS [None]
  - CONTUSION [None]
  - FALL [None]
  - GASTROENTERITIS VIRAL [None]
  - GASTROINTESTINAL HAEMORRHAGE [None]
  - GINGIVITIS [None]
  - INSOMNIA [None]
  - JAW DISORDER [None]
  - MUSCULAR WEAKNESS [None]
  - NAUSEA [None]
  - NEOPLASM MALIGNANT [None]
  - NEURITIS [None]
  - ORAL DISORDER [None]
  - ORAL PAIN [None]
  - PERIODONTITIS [None]
  - THYROID DISORDER [None]
  - URINARY TRACT INFECTION [None]
  - VOMITING [None]
